FAERS Safety Report 12923210 (Version 1)
Quarter: 2016Q4

REPORT INFORMATION
  Report Type: Spontaneous
  Country: CA (occurrence: CA)
  Receive Date: 20161109
  Receipt Date: 20161109
  Transmission Date: 20170207
  Serious: Yes (Hospitalization, Other)
  Sender: FDA-Public Use
  Company Number: CA-BRISTOL-MYERS SQUIBB COMPANY-BMS-2016-091094

PATIENT
  Age: 86 Year
  Sex: Female
  Weight: 48.73 kg

DRUGS (1)
  1. ELIQUIS [Suspect]
     Active Substance: APIXABAN
     Indication: CEREBROVASCULAR ACCIDENT PROPHYLAXIS
     Dosage: 2.5 MG, BID
     Route: 048

REACTIONS (4)
  - Ischaemic stroke [Recovering/Resolving]
  - Infarction [Recovering/Resolving]
  - Drug ineffective [Unknown]
  - Visual field tests abnormal [Recovering/Resolving]
